FAERS Safety Report 9225167 (Version 1)
Quarter: 2013Q2

REPORT INFORMATION
  Report Type: Spontaneous
  Country: BR (occurrence: BR)
  Receive Date: 20130411
  Receipt Date: 20130411
  Transmission Date: 20140414
  Serious: Yes (Other)
  Sender: FDA-Public Use
  Company Number: BR-ASTRAZENECA-2013SE22449

PATIENT
  Age: 59 Year
  Sex: Female

DRUGS (4)
  1. SEROQUEL [Suspect]
     Indication: BIPOLAR DISORDER
     Route: 048
  2. SEROQUEL [Suspect]
     Indication: SCHIZOPHRENIA
     Route: 048
  3. ARTOVASTATIN [Concomitant]
  4. PURAN T4 [Concomitant]

REACTIONS (3)
  - Bone disorder [Recovered/Resolved]
  - Toothache [Unknown]
  - Gingival inflammation [Unknown]
